FAERS Safety Report 17402224 (Version 1)
Quarter: 2020Q1

REPORT INFORMATION
  Report Type: Spontaneous
  Country: US (occurrence: US)
  Receive Date: 20200210
  Receipt Date: 20200210
  Transmission Date: 20200409
  Serious: Yes (Hospitalization)
  Sender: FDA-Public Use
  Company Number: None

PATIENT
  Age: 60 Year
  Sex: Female
  Weight: 55.35 kg

DRUGS (6)
  1. SYNTHROID [Concomitant]
     Active Substance: LEVOTHYROXINE SODIUM
  2. VITAMIN D [Concomitant]
     Active Substance: VITAMIN D NOS
  3. RECLAST [Suspect]
     Active Substance: ZOLEDRONIC ACID
     Indication: OSTEOPOROSIS
     Dosage: ?          OTHER FREQUENCY:ONE TIME PER YEAR;?
     Route: 042
     Dates: start: 20200207, end: 20200207
  4. FISH OIL [Concomitant]
     Active Substance: FISH OIL
  5. VITAMIN K [Concomitant]
     Active Substance: PHYTONADIONE
  6. CALCIUM [Concomitant]
     Active Substance: CALCIUM

REACTIONS (5)
  - Chest pain [None]
  - Chest discomfort [None]
  - Musculoskeletal pain [None]
  - Dyspnoea [None]
  - Pain [None]

NARRATIVE: CASE EVENT DATE: 20200207
